FAERS Safety Report 8234795-6 (Version None)
Quarter: 2012Q1

REPORT INFORMATION
  Report Type: 
  Country: None (occurrence: None)
  Receive Date: 20120326
  Receipt Date: 20120315
  Transmission Date: 20120608
  Serious: Yes (Hospitalization)
  Sender: FDA-Public Use
  Company Number: CO-ELI_LILLY_AND_COMPANY-CO201203005115

PATIENT
  Age: 83 Year
  Sex: Female

DRUGS (5)
  1. FORTEO [Suspect]
     Indication: OSTEOPOROSIS
     Dosage: 20 UG, QD
     Route: 058
  2. LOSARTAN POTASSIUM [Concomitant]
  3. CALCIBON D [Concomitant]
     Indication: SUPPLEMENTATION THERAPY
  4. XARELTO [Concomitant]
  5. METOPROLOL SUCCINATE [Concomitant]
     Dosage: 50 ML, UNK

REACTIONS (2)
  - PULMONARY EMBOLISM [None]
  - NAUSEA [None]
